FAERS Safety Report 21636873 (Version 2)
Quarter: 2023Q1

REPORT INFORMATION
  Report Type: Spontaneous
  Country: CA (occurrence: CA)
  Receive Date: 20221124
  Receipt Date: 20230123
  Transmission Date: 20230417
  Serious: Yes (Other)
  Sender: FDA-Public Use
  Company Number: CA-CELLTRION INC.-2021CA013330

PATIENT

DRUGS (19)
  1. INFLECTRA [Suspect]
     Active Substance: INFLIXIMAB-DYYB
     Indication: Crohn^s disease
     Dosage: 313 MG (313 MG, INDUCTION AT WEEK 0, 2 AND 6, THEN EVERY 8 WEEK)
     Route: 042
     Dates: start: 20170712, end: 20180406
  2. INFLECTRA [Suspect]
     Active Substance: INFLIXIMAB-DYYB
     Dosage: 335 MG (335 MG, EVERY 8 WEEK)
     Route: 042
     Dates: start: 20180601, end: 20190312
  3. INFLECTRA [Suspect]
     Active Substance: INFLIXIMAB-DYYB
     Dosage: 400 MG (400 MG EVERY 8 WEEKS)
     Route: 042
     Dates: start: 20190507
  4. INFLECTRA [Suspect]
     Active Substance: INFLIXIMAB-DYYB
     Dosage: 400 MG (400 MG EVERY 8 WEEKS)
     Route: 042
     Dates: start: 20210630
  5. INFLECTRA [Suspect]
     Active Substance: INFLIXIMAB-DYYB
     Dosage: 400 MG (400 MG EVERY 8 WEEKS)
     Route: 042
     Dates: start: 20210826
  6. INFLECTRA [Suspect]
     Active Substance: INFLIXIMAB-DYYB
     Dosage: 400 MG (400 MG EVERY 8 WEEKS)
     Route: 042
     Dates: start: 20211021
  7. INFLECTRA [Suspect]
     Active Substance: INFLIXIMAB-DYYB
     Dosage: 400 MG (400 MG EVERY 8 WEEKS)
     Route: 042
     Dates: start: 20211215
  8. INFLECTRA [Suspect]
     Active Substance: INFLIXIMAB-DYYB
     Dosage: 400 MG (400 MG EVERY 8 WEEKS)
     Route: 042
     Dates: start: 20220209
  9. INFLECTRA [Suspect]
     Active Substance: INFLIXIMAB-DYYB
     Dosage: 400 MG (400 MG EVERY 8 WEEKS)
     Route: 042
     Dates: start: 20220406
  10. INFLECTRA [Suspect]
     Active Substance: INFLIXIMAB-DYYB
     Dosage: 400 MG (400 MG, EVERY 8 WEEKS)
     Route: 042
     Dates: start: 20220601
  11. INFLECTRA [Suspect]
     Active Substance: INFLIXIMAB-DYYB
     Dosage: 400 MG (400 MG, EVERY 8 WEEKS)
     Route: 042
     Dates: start: 20220720
  12. INFLECTRA [Suspect]
     Active Substance: INFLIXIMAB-DYYB
     Dosage: 400 MG (400 MG, EVERY 8 WEEKS)
     Route: 042
     Dates: start: 20220914
  13. INFLECTRA [Suspect]
     Active Substance: INFLIXIMAB-DYYB
     Dosage: 400 MG (400 MG, EVERY 8 WEEKS)
     Route: 042
     Dates: start: 20221115
  14. INFLECTRA [Suspect]
     Active Substance: INFLIXIMAB-DYYB
     Dosage: 400 MG (400 MG, EVERY 8 WEEKS)
     Route: 042
     Dates: start: 20230112
  15. CALCIUM [Concomitant]
     Active Substance: CALCIUM
     Dosage: 1 DF,DOSAGE NOT AVAILABLE
     Route: 065
  16. IMODIUM [Concomitant]
     Active Substance: LOPERAMIDE HYDROCHLORIDE
     Indication: Muscle spasms
     Dosage: 1 DF,DOSAGE NOT AVAILABLE
     Route: 065
  17. IMODIUM [Concomitant]
     Active Substance: LOPERAMIDE HYDROCHLORIDE
     Indication: Micturition urgency
  18. LORAZEPAM [Concomitant]
     Active Substance: LORAZEPAM
     Dosage: 1 MG, FREQUENCY NOT AVAILABLE
     Route: 048
  19. VITAMIN D NOS [Concomitant]
     Active Substance: VITAMIN D NOS
     Dosage: 1 DF.DOSAGE NOT AVAILABLE
     Route: 065

REACTIONS (9)
  - Tongue injury [Recovered/Resolved]
  - Dental operation [Unknown]
  - Poor venous access [Unknown]
  - Dizziness [Recovering/Resolving]
  - Panic attack [Recovering/Resolving]
  - Dyspnoea [Recovering/Resolving]
  - Fistula [Unknown]
  - Weight decreased [Not Recovered/Not Resolved]
  - Off label use [Unknown]

NARRATIVE: CASE EVENT DATE: 20170712
